FAERS Safety Report 12211413 (Version 1)
Quarter: 2016Q1

REPORT INFORMATION
  Report Type: Spontaneous
  Country: JP (occurrence: JP)
  Receive Date: 20160325
  Receipt Date: 20160325
  Transmission Date: 20160526
  Serious: Yes (Hospitalization)
  Sender: FDA-Public Use
  Company Number: JP-IMPAX LABORATORIES, INC-2016-IPXL-00318

PATIENT
  Age: 75 Year
  Sex: Female

DRUGS (4)
  1. DIVALPROEX SODIUM ER [Suspect]
     Active Substance: DIVALPROEX SODIUM
     Indication: TREMOR
     Dosage: 1000 MG, 1 /DAY
     Route: 065
  2. PEROSPIRONE [Concomitant]
     Active Substance: PEROSPIRONE
     Indication: TREMOR
     Dosage: 20 MG, 1 /DAY
     Route: 065
  3. DIVALPROEX SODIUM ER [Suspect]
     Active Substance: DIVALPROEX SODIUM
     Dosage: 800 MG, 1 /DAY
     Route: 065
  4. DIVALPROEX SODIUM ER [Suspect]
     Active Substance: DIVALPROEX SODIUM
     Dosage: 400 MG, 1 /DAY
     Route: 065

REACTIONS (1)
  - Parkinsonism [Recovering/Resolving]
